FAERS Safety Report 17840851 (Version 1)
Quarter: 2020Q2

REPORT INFORMATION
  Report Type: Spontaneous
  Country: GB (occurrence: GB)
  Receive Date: 20200529
  Receipt Date: 20200529
  Transmission Date: 20200714
  Serious: Yes (Life-Threatening, Other)
  Sender: FDA-Public Use
  Company Number: GB-TEVA-2020-GB-1240874

PATIENT
  Age: 75 Year
  Sex: Female

DRUGS (6)
  1. METFORMIN [Concomitant]
     Active Substance: METFORMIN HYDROCHLORIDE
  2. SITAGLIPTIN [Concomitant]
     Active Substance: SITAGLIPTIN
  3. TRAMADOL. [Concomitant]
     Active Substance: TRAMADOL
  4. PARACETAMOL [Concomitant]
     Active Substance: ACETAMINOPHEN
  5. WARFARIN [Suspect]
     Active Substance: WARFARIN
     Indication: EMBOLISM VENOUS
     Route: 065
  6. SIMVASTATIN. [Concomitant]
     Active Substance: SIMVASTATIN

REACTIONS (1)
  - International normalised ratio increased [Recovered/Resolved]
